FAERS Safety Report 12888733 (Version 2)
Quarter: 2016Q4

REPORT INFORMATION
  Report Type: Spontaneous
  Country: JP (occurrence: JP)
  Receive Date: 20161027
  Receipt Date: 20161216
  Transmission Date: 20170207
  Serious: Yes (Hospitalization)
  Sender: FDA-Public Use
  Company Number: PHJP2016JP027436

PATIENT
  Sex: Male

DRUGS (2)
  1. ZYKADIA [Suspect]
     Active Substance: CERITINIB
     Indication: NON-SMALL CELL LUNG CANCER
     Dosage: 750 MG, QD
     Route: 048
     Dates: start: 20160915, end: 201610
  2. ZYKADIA [Suspect]
     Active Substance: CERITINIB
     Dosage: 600 MG, UNK
     Route: 048
     Dates: end: 201612

REACTIONS (8)
  - Cholecystitis [Recovered/Resolved]
  - Amylase increased [Recovered/Resolved]
  - Metastases to liver [Recovering/Resolving]
  - Liver disorder [Not Recovered/Not Resolved]
  - Lipase increased [Recovered/Resolved]
  - Intra-abdominal haemorrhage [Recovering/Resolving]
  - Neoplasm progression [Unknown]
  - Nausea [Recovering/Resolving]

NARRATIVE: CASE EVENT DATE: 20160919
